FAERS Safety Report 18653159 (Version 1)
Quarter: 2020Q4

REPORT INFORMATION
  Report Type: Spontaneous
  Country: DK (occurrence: DK)
  Receive Date: 20201223
  Receipt Date: 20201223
  Transmission Date: 20210114
  Serious: Yes (Other)
  Sender: FDA-Public Use
  Company Number: DK-MICRO LABS LIMITED-ML2020-03793

PATIENT
  Age: 35 Year
  Sex: Female

DRUGS (8)
  1. LEVOFLOXACIN. [Suspect]
     Active Substance: LEVOFLOXACIN
  2. DEXTROPROPOXYPHENE [Suspect]
     Active Substance: PROPOXYPHENE HYDROCHLORIDE
  3. IMATINIB. [Suspect]
     Active Substance: IMATINIB MESYLATE
  4. WARFARIN [Suspect]
     Active Substance: WARFARIN
  5. PARACETAMOL [Suspect]
     Active Substance: ACETAMINOPHEN
  6. ENOXAPARIN [Suspect]
     Active Substance: ENOXAPARIN
  7. PROCHLORPERAZINE. [Suspect]
     Active Substance: PROCHLORPERAZINE
  8. LORAZEPAM. [Suspect]
     Active Substance: LORAZEPAM

REACTIONS (2)
  - Abortion spontaneous [Unknown]
  - Maternal exposure during pregnancy [Unknown]
